FAERS Safety Report 16881166 (Version 1)
Quarter: 2019Q4

REPORT INFORMATION
  Report Type: Spontaneous
  Country: CN (occurrence: CN)
  Receive Date: 20191003
  Receipt Date: 20191003
  Transmission Date: 20200122
  Serious: Yes (Other)
  Sender: FDA-Public Use
  Company Number: CN-PFIZER INC-2019421516

PATIENT
  Age: 58 Year
  Sex: Female
  Weight: 45 kg

DRUGS (2)
  1. CYTOTEC [Suspect]
     Active Substance: MISOPROSTOL
     Indication: PREOPERATIVE CARE
  2. CYTOTEC [Suspect]
     Active Substance: MISOPROSTOL
     Indication: HYSTEROSCOPY
     Dosage: 600 UG, DAILY
     Route: 067
     Dates: start: 20190830, end: 20190830

REACTIONS (7)
  - Blood pressure increased [Recovered/Resolved]
  - Off label use [Unknown]
  - Product use issue [Unknown]
  - Tremor [Recovered/Resolved]
  - Product use in unapproved indication [Unknown]
  - Heart rate increased [Recovered/Resolved]
  - Dyspnoea [Recovered/Resolved]

NARRATIVE: CASE EVENT DATE: 20190830
